FAERS Safety Report 4648441-1 (Version None)
Quarter: 2005Q2

REPORT INFORMATION
  Report Type: 
  Country: None (occurrence: None)
  Receive Date: 20050429
  Receipt Date: 20050419
  Transmission Date: 20051028
  Serious: Yes (Other)
  Sender: FDA-Public Use
  Company Number: PHEH2005US04512

PATIENT
  Age: 61 Year
  Sex: Female

DRUGS (3)
  1. DIOVAN [Suspect]
     Indication: HYPERTENSION
     Dosage: 160 MG, BID
     Route: 048
     Dates: start: 20000101
  2. NORMODYNE [Suspect]
     Indication: HYPERTENSION
     Dosage: 600 MG, QD
     Route: 048
  3. NORVASC [Concomitant]
     Indication: HYPERTENSION
     Dosage: 10 MG, QD
     Route: 048

REACTIONS (6)
  - ANGIOPLASTY [None]
  - DIZZINESS [None]
  - HYPOTENSION [None]
  - MYOCARDIAL INFARCTION [None]
  - VISION BLURRED [None]
  - VISUAL DISTURBANCE [None]
